FAERS Safety Report 8390087-6 (Version None)
Quarter: 2012Q2

REPORT INFORMATION
  Report Type: 
  Country: None (occurrence: None)
  Receive Date: 20120529
  Receipt Date: 20120517
  Transmission Date: 20120825
  Serious: Yes (Other)
  Sender: FDA-Public Use
  Company Number: US-JNJFOC-20120515241

PATIENT
  Sex: Female

DRUGS (6)
  1. ENBREL [Concomitant]
     Indication: PSORIASIS
     Route: 065
  2. DIMENHYDRINATE [Concomitant]
     Route: 065
  3. ALL OTHER THERAPEUTIC AGENTS [Concomitant]
     Route: 065
  4. STELARA [Suspect]
     Indication: PSORIASIS
     Route: 058
     Dates: start: 20100401
  5. ALL OTHER THERAPEUTIC AGENTS [Concomitant]
     Dosage: FOR A YEAR
     Route: 065
  6. PREDNISONE TAB [Concomitant]
     Route: 048

REACTIONS (1)
  - MYCOBACTERIUM TUBERCULOSIS COMPLEX TEST POSITIVE [None]
